FAERS Safety Report 5146605-4 (Version None)
Quarter: 2006Q4

REPORT INFORMATION
  Report Type: 
  Country: None (occurrence: None)
  Receive Date: 20060911
  Receipt Date: 20060814
  Transmission Date: 20070319
  Serious: No
  Sender: FDA-Public Use
  Company Number: IND-AE-06-SAN-032

PATIENT
  Age: 74 Year
  Sex: Female

DRUGS (3)
  1. SANCTURA [Suspect]
     Indication: URINARY INCONTINENCE
     Dosage: 20 MG -BID-ORAL
     Route: 048
     Dates: start: 20060501
  2. CAPTOPRIL [Concomitant]
  3. ASPIRIN [Concomitant]

REACTIONS (2)
  - DRUG INEFFECTIVE [None]
  - POLYURIA [None]
